FAERS Safety Report 9271125 (Version 4)
Quarter: 2014Q2

REPORT INFORMATION
  Report Type: Report from Study
  Country: US (occurrence: US)
  Receive Date: 20130506
  Receipt Date: 20140402
  Transmission Date: 20141212
  Serious: Yes (Other)
  Sender: FDA-Public Use
  Company Number: PHEH2013US009284

PATIENT
  Age: 36 Year
  Sex: Female

DRUGS (2)
  1. GILENYA [Suspect]
     Indication: MULTIPLE SCLEROSIS
     Dosage: 0.5 MG, QD
     Route: 048
     Dates: start: 20111121, end: 20130422
  2. GILENYA [Suspect]
     Dosage: 0.5 MG, QD
     Route: 048

REACTIONS (3)
  - Abortion spontaneous [Unknown]
  - Anxiety [Not Recovered/Not Resolved]
  - Maternal exposure during pregnancy [Unknown]
